FAERS Safety Report 4567733-8 (Version None)
Quarter: 2005Q1

REPORT INFORMATION
  Report Type: 
  Country: None (occurrence: None)
  Receive Date: 20050127
  Receipt Date: 20050114
  Transmission Date: 20050727
  Serious: Yes (Hospitalization)
  Sender: FDA-Public Use
  Company Number: 2005014573

PATIENT
  Age: 60 Year
  Sex: Female

DRUGS (7)
  1. CABERGOLINE [Suspect]
     Indication: BASAL GANGLION DEGENERATION
     Dosage: 10 MG (DAILY), ORAL
     Route: 048
     Dates: start: 20011010
  2. GABAPENTIN [Concomitant]
  3. SINEMET (CARBIDOPA, LEVODOPA0 [Concomitant]
  4. ACETAMINOPHEN [Concomitant]
  5. TRAMADOL HCL [Concomitant]
  6. ROPINIROLE HYDROCHLORIDED (ROPINIROLE HYDROCHLORIDE) [Concomitant]
  7. SALURES-K (BENDROFLUMETHIAZIDE, POTASSIUM CHLORIDE) [Concomitant]

REACTIONS (3)
  - BRADYCARDIA [None]
  - MITRAL VALVE INCOMPETENCE [None]
  - MITRAL VALVE STENOSIS [None]
